FAERS Safety Report 14764753 (Version 1)
Quarter: 2018Q2

REPORT INFORMATION
  Report Type: Spontaneous
  Country: FR (occurrence: FR)
  Receive Date: 20180416
  Receipt Date: 20180416
  Transmission Date: 20180711
  Serious: Yes (Life-Threatening)
  Sender: FDA-Public Use
  Company Number: FR-SA-2018SA104673

PATIENT
  Age: 78 Year
  Sex: Male
  Weight: 75 kg

DRUGS (8)
  1. ELISOR [Concomitant]
     Active Substance: PRAVASTATIN SODIUM
     Dosage: FORM: TABLET BREAKABLE
     Route: 065
  2. ADANCOR [Concomitant]
     Active Substance: NICORANDIL
     Dosage: FORM: TABLET BREAKABLE
     Route: 065
  3. TIMOFEROL [Concomitant]
     Active Substance: ASCORBIC ACID\FERROUS SULFATE
  4. FLECAINE [Concomitant]
     Active Substance: FLECAINIDE
     Dosage: FORM: TABLET BREAKABLE
     Route: 065
  5. INEXIUM [Concomitant]
     Active Substance: ESOMEPRAZOLE
     Route: 065
  6. CHRONADALATE [Concomitant]
     Active Substance: NIFEDIPINE
  7. LOVENOX [Suspect]
     Active Substance: ENOXAPARIN SODIUM
     Indication: MYOCARDIAL ISCHAEMIA
     Route: 058
     Dates: start: 20180310, end: 20180316
  8. TAREG [Concomitant]
     Active Substance: VALSARTAN

REACTIONS (4)
  - Acute kidney injury [Recovered/Resolved]
  - Shock haemorrhagic [Recovered/Resolved]
  - Muscle haemorrhage [Not Recovered/Not Resolved]
  - Anaemia [Not Recovered/Not Resolved]

NARRATIVE: CASE EVENT DATE: 20180316
